FAERS Safety Report 15495701 (Version 1)
Quarter: 2018Q4

REPORT INFORMATION
  Report Type: Spontaneous
  Country: PT (occurrence: PT)
  Receive Date: 20181013
  Receipt Date: 20181013
  Transmission Date: 20190205
  Serious: Yes (Other)
  Sender: FDA-Public Use
  Company Number: PHHY2018PT120694

PATIENT
  Age: 4 Year
  Sex: Male

DRUGS (1)
  1. AMOXICILLIN. [Suspect]
     Active Substance: AMOXICILLIN
     Indication: PRODUCT USED FOR UNKNOWN INDICATION
     Dosage: 90 MG/KG, QD
     Route: 048
     Dates: start: 20170831

REACTIONS (2)
  - Rash papular [Recovered/Resolved]
  - Oedema genital [Recovered/Resolved]

NARRATIVE: CASE EVENT DATE: 20170901
